FAERS Safety Report 21850185 (Version 1)
Quarter: 2023Q1

REPORT INFORMATION
  Report Type: Spontaneous
  Country: CN (occurrence: CN)
  Receive Date: 20230111
  Receipt Date: 20230111
  Transmission Date: 20230418
  Serious: Yes (Other)
  Sender: FDA-Public Use
  Company Number: CN-009507513-2301CHN002074

PATIENT
  Age: 62 Year
  Sex: Male

DRUGS (2)
  1. KEYTRUDA [Suspect]
     Active Substance: PEMBROLIZUMAB
     Indication: Scrotal cancer
     Dosage: 200MG, Q21D, 5 CYCLES
     Dates: start: 20220908, end: 20221201
  2. KEYTRUDA [Suspect]
     Active Substance: PEMBROLIZUMAB
     Dosage: 200MG, ONCE (REPORTED AS 1 TIME/ DAY)
     Route: 041
     Dates: start: 20221222, end: 20221222

REACTIONS (4)
  - Chemotherapy [Unknown]
  - Thyroxine free decreased [Unknown]
  - Blood thyroid stimulating hormone increased [Unknown]
  - Product use in unapproved indication [Unknown]

NARRATIVE: CASE EVENT DATE: 20220908
